FAERS Safety Report 15298130 (Version 2)
Quarter: 2018Q3

REPORT INFORMATION
  Report Type: Spontaneous
  Country: JP (occurrence: JP)
  Receive Date: 20180820
  Receipt Date: 20180913
  Transmission Date: 20181010
  Serious: Yes (Other)
  Sender: FDA-Public Use
  Company Number: JP-PFIZER INC-2018313841

PATIENT
  Age: 53 Year
  Sex: Female

DRUGS (3)
  1. REBAMIPIDE [Concomitant]
     Active Substance: REBAMIPIDE
     Dosage: 100 MG, 2X/DAY
     Route: 048
     Dates: start: 20180726, end: 20180726
  2. CELECOX [Suspect]
     Active Substance: CELECOXIB
     Indication: ANALGESIC THERAPY
     Dosage: 100 MG, 2X/DAY
     Route: 048
     Dates: start: 20180726, end: 20180726
  3. CELECOX [Suspect]
     Active Substance: CELECOXIB
     Indication: PERIARTHRITIS

REACTIONS (3)
  - Pruritus generalised [Recovering/Resolving]
  - Erythema [Recovering/Resolving]
  - Swelling [Recovering/Resolving]

NARRATIVE: CASE EVENT DATE: 20180726
